FAERS Safety Report 14217472 (Version 1)
Quarter: 2017Q4

REPORT INFORMATION
  Report Type: Spontaneous
  Country: US (occurrence: US)
  Receive Date: 20171123
  Receipt Date: 20171123
  Transmission Date: 20180321
  Serious: Yes (Hospitalization)
  Sender: FDA-Public Use
  Company Number: US-APOTEX-2017AP021513

PATIENT
  Age: 80 Year
  Sex: Male

DRUGS (4)
  1. MEXILETINE [Suspect]
     Active Substance: MEXILETINE
     Indication: VENTRICULAR ARRHYTHMIA
     Dosage: 200 MG, TID
     Route: 065
  2. CARVEDILOL. [Suspect]
     Active Substance: CARVEDILOL
     Indication: VENTRICULAR ARRHYTHMIA
     Dosage: 25 MG, BID
     Route: 065
  3. AMIODARONE HYDROCHLORIDE. [Suspect]
     Active Substance: AMIODARONE HYDROCHLORIDE
     Indication: VENTRICULAR ARRHYTHMIA
     Route: 065
  4. SOTALOL HYDROCHLORIDE. [Suspect]
     Active Substance: SOTALOL HYDROCHLORIDE
     Indication: VENTRICULAR ARRHYTHMIA
     Dosage: 120 MG, BID
     Route: 065

REACTIONS (2)
  - Adverse drug reaction [Unknown]
  - Drug ineffective [Unknown]
